FAERS Safety Report 15028635 (Version 2)
Quarter: 2021Q1

REPORT INFORMATION
  Report Type: Spontaneous
  Country: US (occurrence: US)
  Receive Date: 20180619
  Receipt Date: 20210127
  Transmission Date: 20210419
  Serious: Yes (Hospitalization, Other)
  Sender: FDA-Public Use
  Company Number: US-BAYER-2018-056460

PATIENT
  Age: 48 Year
  Sex: Female

DRUGS (9)
  1. AMITRIPTYLINE HCL [Concomitant]
     Active Substance: AMITRIPTYLINE
     Dosage: 75 MG, UNK
     Route: 065
     Dates: start: 20160306
  2. BAYER LOW DOSE [Suspect]
     Active Substance: ASPIRIN
     Indication: PRODUCT USED FOR UNKNOWN INDICATION
     Dosage: 81 MG, QD
     Route: 048
  3. METFORMIN HCL [Concomitant]
     Active Substance: METFORMIN HYDROCHLORIDE
     Dosage: 500 MG, UNK
     Route: 065
     Dates: start: 20160124
  4. NEURONTIN [Concomitant]
     Active Substance: GABAPENTIN
     Dosage: 300 MG, UNK
     Route: 065
     Dates: start: 20160226
  5. XARELTO [Suspect]
     Active Substance: RIVAROXABAN
     Indication: PULMONARY EMBOLISM
  6. XARELTO [Suspect]
     Active Substance: RIVAROXABAN
     Indication: CEREBROVASCULAR ACCIDENT PROPHYLAXIS
  7. XARELTO [Suspect]
     Active Substance: RIVAROXABAN
     Indication: DEEP VEIN THROMBOSIS
     Dosage: 20 MG, QD
     Route: 048
     Dates: start: 20150528, end: 20160920
  8. ATENOLOL. [Concomitant]
     Active Substance: ATENOLOL
     Dosage: 25 MG, UNK
     Route: 065
     Dates: start: 20160210
  9. KLONOPIN [Concomitant]
     Active Substance: CLONAZEPAM
     Dosage: 1 MG, UNK
     Route: 065
     Dates: start: 20160207

REACTIONS (6)
  - Ischaemic stroke [Unknown]
  - Haematochezia [Unknown]
  - Upper gastrointestinal haemorrhage [Unknown]
  - Haemoptysis [Unknown]
  - Gastrointestinal haemorrhage [Recovering/Resolving]
  - Rectal haemorrhage [Unknown]

NARRATIVE: CASE EVENT DATE: 20160510
